FAERS Safety Report 16439725 (Version 1)
Quarter: 2019Q2

REPORT INFORMATION
  Report Type: Spontaneous
  Country: US (occurrence: US)
  Receive Date: 20190617
  Receipt Date: 20190617
  Transmission Date: 20190711
  Serious: No
  Sender: FDA-Public Use
  Company Number: US-MYLANLABS-2019M1055713

PATIENT
  Sex: Male
  Weight: 84 kg

DRUGS (1)
  1. FONDAPARINUX SODIUM INJECTION, USP [Suspect]
     Active Substance: FONDAPARINUX SODIUM
     Indication: COAGULOPATHY
     Dosage: UNK
     Route: 058

REACTIONS (1)
  - Injection site bruising [Recovering/Resolving]
